FAERS Safety Report 21785882 (Version 1)
Quarter: 2022Q4

REPORT INFORMATION
  Report Type: Report from Study
  Country: US (occurrence: US)
  Receive Date: 20221227
  Receipt Date: 20221227
  Transmission Date: 20230113
  Serious: No
  Sender: FDA-Public Use
  Company Number: US-ABBVIE-4212889

PATIENT
  Sex: Female

DRUGS (1)
  1. HUMIRA [Suspect]
     Active Substance: ADALIMUMAB
     Indication: Psoriatic arthropathy
     Route: 058
     Dates: start: 202210

REACTIONS (5)
  - Therapeutic product effect incomplete [Unknown]
  - Nasopharyngitis [Unknown]
  - Arthritis [Unknown]
  - Mobility decreased [Unknown]
  - Chills [Unknown]

NARRATIVE: CASE EVENT DATE: 20220101
